FAERS Safety Report 25433253 (Version 1)
Quarter: 2025Q2

REPORT INFORMATION
  Report Type: Spontaneous
  Country: AT (occurrence: AT)
  Receive Date: 20250613
  Receipt Date: 20250613
  Transmission Date: 20250717
  Serious: Yes (Life-Threatening, Other)
  Sender: BAXTER
  Company Number: None

PATIENT
  Age: 41 Year
  Sex: Male
  Weight: 110 kg

DRUGS (21)
  1. CYCLOPHOSPHAMIDE [Suspect]
     Active Substance: CYCLOPHOSPHAMIDE
     Route: 065
     Dates: start: 20250404, end: 20250406
  2. CYCLOPHOSPHAMIDE [Suspect]
     Active Substance: CYCLOPHOSPHAMIDE
     Route: 065
     Dates: start: 20250412, end: 20250414
  3. Micro kalium [Concomitant]
     Dosage: 6 DOSAGE FORM, QD, (DOSAGE TEXT: 2-2-2), ORAL
     Route: 048
  4. CANDESARTAN [Concomitant]
     Active Substance: CANDESARTAN
     Dosage: 16 MG, QD, (DOSAGE TEXT: 1-0-0-1), ORAL
     Route: 048
  5. CANDESARTAN CILEXETIL\HYDROCHLOROTHIAZIDE [Concomitant]
     Active Substance: CANDESARTAN CILEXETIL\HYDROCHLOROTHIAZIDE
     Dosage: 1 DOSAGE FORM, QD (DOSAGE TEXT: 1-0-0), CANDESARTAN HCT 16/12,5, ORAL
     Route: 048
  6. ATORVASTATIN [Concomitant]
     Active Substance: ATORVASTATIN
     Dosage: 20 MG, QD, (DOSAGE TEXT: 0-0-0-1), ORAL
     Route: 048
     Dates: end: 20250512
  7. ESOMEPRAZOLE [Concomitant]
     Active Substance: ESOMEPRAZOLE
     Dosage: 20 MG, QD, (DOSAGE TEXT: 1-0-0-0), ORAL
     Route: 048
  8. TRAMADOL [Concomitant]
     Active Substance: TRAMADOL
     Dosage: 200 MG, QD, (DOSAGE TEXT: 0-0-0-1), ORAL
     Route: 048
  9. Novalgin [Concomitant]
     Dosage: 3000 MG, QD, (DOSAGE TEXT: 2-2-2-0), ORAL
     Route: 048
  10. PREGABALIN [Concomitant]
     Active Substance: PREGABALIN
     Dosage: 300 MG, QD, (DOSAGE TEXT: 1-0-1-0), ORAL
     Route: 048
  11. AMITRIPTYLINE [Concomitant]
     Active Substance: AMITRIPTYLINE
     Dosage: 10 MG, QD, (DOSAGE TEXT: 0-0-0-1), ORAL
     Route: 048
  12. METFORMIN [Concomitant]
     Active Substance: METFORMIN HYDROCHLORIDE
     Dosage: 2000 MG, QD, (DOSAGE TEXT: 1-0-1-0), ORAL
     Route: 048
  13. LIORESAL [Concomitant]
     Active Substance: BACLOFEN
     Dosage: 40 MG, QD, (DOSAGE TEXT: 1,5-1,5-0-1), ORAL
     Route: 048
  14. ELIQUIS [Concomitant]
     Active Substance: APIXABAN
     Dosage: 10 MG, QD, (DOSAGE TEXT: 1-0-1-0), ORAL
     Route: 048
  15. PREDNISOLONE [Concomitant]
     Active Substance: PREDNISOLONE
     Dosage: 10 MG, QD, (DOSAGE TEXT: 2-0-0-0), ORAL
     Route: 048
  16. TREHALOSE [Concomitant]
     Active Substance: TREHALOSE
     Route: 065
  17. DRONABINOL [Concomitant]
     Active Substance: DRONABINOL
     Route: 048
  18. IBUPROFEN [Concomitant]
     Active Substance: IBUPROFEN
     Route: 048
  19. TRAMADOL [Concomitant]
     Active Substance: TRAMADOL
     Dosage: 100 MG, QD, (DOSAGE TEXT: 1-0-0-0), ORAL
     Route: 048
  20. PREGABALIN [Concomitant]
     Active Substance: PREGABALIN
     Dosage: 50 MG, QD, (DOSAGE TEXT: 1-0-1-0), ORAL
     Route: 048
  21. TRAZODONE HYDROCHLORIDE [Concomitant]
     Active Substance: TRAZODONE HYDROCHLORIDE
     Route: 048
     Dates: start: 20250218, end: 20250512

REACTIONS (2)
  - Drug-induced liver injury [Recovered/Resolved]
  - Hepatic enzyme increased [Recovered/Resolved]

NARRATIVE: CASE EVENT DATE: 20250416
